FAERS Safety Report 8816419 (Version 1)
Quarter: 2012Q4

REPORT INFORMATION
  Report Type: Spontaneous
  Country: US (occurrence: None)
  Receive Date: 20120928
  Receipt Date: 20120928
  Transmission Date: 20130627
  Serious: Yes (Other)
  Sender: FDA-Public Use
  Company Number: None

PATIENT
  Age: 25 Year
  Sex: Male

DRUGS (1)
  1. SERTRALINE [Suspect]
     Indication: MAJOR DEPRESSION
     Dosage: 100 mg qAM PO
     Route: 048
     Dates: start: 20120703, end: 20120718

REACTIONS (10)
  - Rash [None]
  - Blood bilirubin increased [None]
  - Bilirubin conjugated increased [None]
  - Aspartate aminotransferase increased [None]
  - Alanine aminotransferase increased [None]
  - Blood alkaline phosphatase increased [None]
  - Neutrophil count abnormal [None]
  - Monocyte count abnormal [None]
  - Lymphocyte percentage decreased [None]
  - Abdominal pain upper [None]
